FAERS Safety Report 20779181 (Version 5)
Quarter: 2022Q2

REPORT INFORMATION
  Report Type: Other
  Country: IT (occurrence: None)
  Receive Date: 20220503
  Receipt Date: 20220613
  Transmission Date: 20220720
  Serious: No
  Sender: FDA-Public Use
  Company Number: IT-ROCHE-3088063

PATIENT
  Age: 27 Year
  Sex: Male
  Weight: 65 kg

DRUGS (7)
  1. OCRELIZUMAB [Suspect]
     Active Substance: OCRELIZUMAB
     Indication: Relapsing-remitting multiple sclerosis
     Route: 042
     Dates: start: 20201028
  2. OCRELIZUMAB [Suspect]
     Active Substance: OCRELIZUMAB
     Route: 042
  3. TELMISARTAN [Concomitant]
     Active Substance: TELMISARTAN
     Route: 048
     Dates: start: 2012
  4. HYDROCHLOROTHIAZIDE [Concomitant]
     Active Substance: HYDROCHLOROTHIAZIDE
     Route: 048
     Dates: start: 2012
  5. KETOPROFEN [Concomitant]
     Active Substance: KETOPROFEN
     Route: 048
     Dates: start: 2000
  6. TACHIPIRINA [Concomitant]
     Active Substance: ACETAMINOPHEN
     Route: 048
     Dates: end: 20220329
  7. KETOPROFEN LYSINE [Concomitant]
     Active Substance: KETOPROFEN LYSINE
     Route: 048
     Dates: end: 20220329

REACTIONS (1)
  - COVID-19 [Recovered/Resolved]

NARRATIVE: CASE EVENT DATE: 20220322
